FAERS Safety Report 4559557-2 (Version None)
Quarter: 2005Q1

REPORT INFORMATION
  Report Type: 
  Country: None (occurrence: None)
  Receive Date: 20050124
  Receipt Date: 20050113
  Transmission Date: 20050727
  Serious: Yes (Other)
  Sender: FDA-Public Use
  Company Number: AU-NOVOPROD-241616

PATIENT
  Age: 56 Year
  Sex: Female

DRUGS (2)
  1. NOVORAPID PENFILL [Suspect]
     Indication: ILL-DEFINED DISORDER
  2. PROTAPHANE [Suspect]
     Indication: ILL-DEFINED DISORDER

REACTIONS (1)
  - TRIPLE VESSEL BYPASS GRAFT [None]
